FAERS Safety Report 21036459 (Version 1)
Quarter: 2022Q3

REPORT INFORMATION
  Report Type: Spontaneous
  Country: JP (occurrence: JP)
  Receive Date: 20220702
  Receipt Date: 20220702
  Transmission Date: 20221026
  Serious: Yes (Death, Other)
  Sender: FDA-Public Use
  Company Number: JP-ABBVIE-22K-087-4451243-00

PATIENT
  Age: 82 Year
  Sex: Female

DRUGS (2)
  1. VENCLEXTA [Suspect]
     Active Substance: VENETOCLAX
     Indication: Acute myeloid leukaemia
     Route: 048
     Dates: start: 20211012
  2. AZACITIDINE [Concomitant]
     Active Substance: AZACITIDINE
     Indication: Acute myeloid leukaemia
     Dates: start: 20211012

REACTIONS (7)
  - Death [Fatal]
  - Myelosuppression [Unknown]
  - Spinal compression fracture [Unknown]
  - Lung infiltration [Unknown]
  - Loss of personal independence in daily activities [Unknown]
  - Stress [Unknown]
  - Full blood count decreased [Unknown]
